FAERS Safety Report 8164023-1 (Version None)
Quarter: 2012Q1

REPORT INFORMATION
  Report Type: 
  Country: None (occurrence: None)
  Receive Date: 20120224
  Receipt Date: 20120220
  Transmission Date: 20120608
  Serious: No
  Sender: FDA-Public Use
  Company Number: US-PFIZER INC-2012046626

PATIENT
  Sex: Female

DRUGS (1)
  1. LO/OVRAL-28 [Suspect]
     Indication: CONTRACEPTION
     Dosage: UNK

REACTIONS (1)
  - OVARIAN CYST [None]
